FAERS Safety Report 17629103 (Version 2)
Quarter: 2021Q1

REPORT INFORMATION
  Report Type: Spontaneous
  Country: US (occurrence: US)
  Receive Date: 20200406
  Receipt Date: 20210324
  Transmission Date: 20210419
  Serious: No
  Sender: FDA-Public Use
  Company Number: US-ALLERGAN-2003818US

PATIENT
  Sex: Female
  Weight: 61.23 kg

DRUGS (3)
  1. OTHER MEDICINES (UNSPECIFIED) [Concomitant]
  2. MESALAZINE ? BP [Suspect]
     Active Substance: MESALAMINE
     Dosage: 400 MG, QD (4 DF A DAY)
     Route: 065
     Dates: start: 201910
  3. MESALAZINE ? BP [Suspect]
     Active Substance: MESALAMINE
     Indication: COLITIS ULCERATIVE
     Dosage: 400 MG, QD (6 DF A DAY)
     Route: 065
     Dates: end: 201912

REACTIONS (4)
  - Pain [Recovering/Resolving]
  - Product appearance confusion [Unknown]
  - Abdominal distension [Recovered/Resolved]
  - Drug ineffective [Unknown]
